FAERS Safety Report 7622888-3 (Version None)
Quarter: 2011Q3

REPORT INFORMATION
  Report Type: 
  Country: None (occurrence: None)
  Receive Date: 20110720
  Receipt Date: 20110707
  Transmission Date: 20111222
  Serious: Yes (Hospitalization)
  Sender: FDA-Public Use
  Company Number: US-ELI_LILLY_AND_COMPANY-US201104005837

PATIENT
  Sex: Female

DRUGS (8)
  1. FORTEO [Suspect]
     Indication: OSTEOPOROSIS
     Dosage: 20 UG, QD
     Dates: start: 20110401
  2. ASPIRIN [Concomitant]
     Dosage: 325 MG, QD
  3. FORTEO [Suspect]
     Dosage: 20 UG, QD
     Dates: end: 20110601
  4. OMEPRAZOLE [Concomitant]
     Dosage: UNK, QD
  5. FORTEO [Suspect]
     Dosage: 20 UG, QD
  6. MOBIC [Concomitant]
     Dosage: 15 MG, QD
  7. COLACE [Concomitant]
     Dosage: 100 MG, BID
  8. PERCOCET [Concomitant]
     Indication: PAIN
     Dosage: 1-2 TABLETS 4-6 HOURS

REACTIONS (13)
  - PAIN [None]
  - OSTEOPOROSIS [None]
  - JOINT SWELLING [None]
  - PAIN IN EXTREMITY [None]
  - FEAR [None]
  - VOMITING [None]
  - HEADACHE [None]
  - ARTHRALGIA [None]
  - FLATULENCE [None]
  - MUSCLE SPASMS [None]
  - ARTHROPATHY [None]
  - SOMNOLENCE [None]
  - NAUSEA [None]
